FAERS Safety Report 20344748 (Version 1)
Quarter: 2022Q1

REPORT INFORMATION
  Report Type: Spontaneous
  Country: CN (occurrence: CN)
  Receive Date: 20220118
  Receipt Date: 20220118
  Transmission Date: 20220423
  Serious: Yes (Hospitalization, Other)
  Sender: FDA-Public Use
  Company Number: CN-BAXTER-2022BAX000675

PATIENT
  Age: 43 Year
  Sex: Female
  Weight: 63 kg

DRUGS (43)
  1. CYCLOPHOSPHAMIDE [Suspect]
     Active Substance: CYCLOPHOSPHAMIDE
     Indication: Breast cancer female
     Dosage: FIRST CHEMOTHERAPY DOSE
     Route: 041
  2. CYCLOPHOSPHAMIDE [Suspect]
     Active Substance: CYCLOPHOSPHAMIDE
     Dosage: 0.9% SODIUM CHLORIDE INJECTION 100ML + CYCLOPHOSPHAMIDE 0.90G
     Route: 041
     Dates: start: 20211106, end: 20211106
  3. CYCLOPHOSPHAMIDE [Suspect]
     Active Substance: CYCLOPHOSPHAMIDE
     Dosage: 0.9% SODIUM CHLORIDE INJECTION 100ML + CYCLOPHOSPHAMIDE 0.90G
     Route: 041
     Dates: start: 202111
  4. CYCLOPHOSPHAMIDE [Suspect]
     Active Substance: CYCLOPHOSPHAMIDE
     Dosage: CYCLOPHOSPHAMIDE 0.90 G + 0.9% SODIUM CHLORIDE INJECTION 100 ML
     Route: 041
     Dates: start: 20211130, end: 20211130
  5. CYCLOPHOSPHAMIDE [Suspect]
     Active Substance: CYCLOPHOSPHAMIDE
     Dosage: THIRD CHEMOTHERAPY, DOCETAXEL 125MG + CYCLOPHOSPHAMIDE 900MG
     Route: 041
     Dates: start: 20211125
  6. CYCLOPHOSPHAMIDE [Suspect]
     Active Substance: CYCLOPHOSPHAMIDE
     Dosage: 0.9% SODIUM CHLORIDE INJECTION 100ML + CYCLOPHOSPHAMIDE 0.90G
     Route: 041
  7. CYCLOPHOSPHAMIDE [Suspect]
     Active Substance: CYCLOPHOSPHAMIDE
     Dosage: DOSE RE-INTRODUCED
     Route: 041
  8. DOCETAXEL [Suspect]
     Active Substance: DOCETAXEL
     Indication: Breast cancer female
     Dosage: FULL DOSE, DOCETAXEL 105 MG + 0.9% SODIUM CHLORIDE INJECTION 250 ML
     Route: 041
     Dates: start: 20211106, end: 20211106
  9. DOCETAXEL [Suspect]
     Active Substance: DOCETAXEL
     Route: 041
     Dates: start: 20211130, end: 20211130
  10. DOCETAXEL [Suspect]
     Active Substance: DOCETAXEL
     Route: 041
     Dates: start: 20211130, end: 20211130
  11. DOCETAXEL [Suspect]
     Active Substance: DOCETAXEL
     Route: 041
     Dates: start: 20211106, end: 20211106
  12. DOCETAXEL [Suspect]
     Active Substance: DOCETAXEL
     Dosage: SECOND CHEMOTHERAPY, DOCETAXEL 125 MG + CYCLOPHOSPHAMIDE 900 MG
     Route: 065
     Dates: start: 20211106
  13. DOCETAXEL [Suspect]
     Active Substance: DOCETAXEL
     Dosage: DOCETAXEL 20 MG + 0.9% SODIUM CHLORIDE 100 ML, FIRST SLOWLY AND THEN QUICKLY(DOSE REINTRODUCED)
     Route: 041
  14. DOCETAXEL [Suspect]
     Active Substance: DOCETAXEL
     Dosage: DOSE RE-INTRODUCED
     Route: 041
  15. DOCETAXEL [Suspect]
     Active Substance: DOCETAXEL
     Dosage: FIRST CHEMOTHERAPY, DOCETAXEL  + CYCLOPHOSPHAMIDE
     Route: 041
  16. SODIUM CHLORIDE [Suspect]
     Active Substance: SODIUM CHLORIDE
     Indication: Medication dilution
     Dosage: FULL DOSE, DOCETAXEL 105 MG + 0.9% SODIUM CHLORIDE INJECTION 250 ML
     Route: 041
     Dates: start: 20211106, end: 20211106
  17. SODIUM CHLORIDE [Suspect]
     Active Substance: SODIUM CHLORIDE
     Route: 041
     Dates: start: 20211130, end: 20211130
  18. SODIUM CHLORIDE [Suspect]
     Active Substance: SODIUM CHLORIDE
     Dosage: 0.9% SODIUM CHLORIDE INJECTION 100 ML + CYCLOPHOSPHAMIDE 0.90 G
     Route: 041
     Dates: start: 20211106, end: 20211106
  19. SODIUM CHLORIDE [Suspect]
     Active Substance: SODIUM CHLORIDE
     Route: 041
     Dates: start: 20211130, end: 20211130
  20. SODIUM CHLORIDE [Suspect]
     Active Substance: SODIUM CHLORIDE
     Dosage: DOCETAXEL 20 MG + 0.9% SODIUM CHLORIDE 100 ML, FIRST SLOWLY AND THEN QUICKLY (DOS RE-INTRODUCED)
     Route: 041
  21. SODIUM CHLORIDE [Suspect]
     Active Substance: SODIUM CHLORIDE
     Dosage: DOSE RE-INTRODUCED
     Route: 041
  22. OMEPRAZOLE [Concomitant]
     Active Substance: OMEPRAZOLE
     Indication: Prophylaxis
     Dosage: OMEPRAZOLE ENTERIC-COATED CAPSULE 40 MG + DEXAMETHASONE TABLET 7.5 MG
     Route: 048
     Dates: start: 20211105
  23. OMEPRAZOLE [Concomitant]
     Active Substance: OMEPRAZOLE
     Dosage: OMEPRAZOLE ENTERIC-COATED CAPSULE 40 MG + DEXAMETHASONE TABLET 7.5 MG
     Route: 048
     Dates: start: 20211106
  24. OMEPRAZOLE [Concomitant]
     Active Substance: OMEPRAZOLE
     Dosage: SECOND DOSE, OMEPRAZOLE ENTERIC-COATED CAPSULE 40 MG + DEXAMETHASONE TABLET 7.5 MG
     Route: 048
     Dates: start: 20211105
  25. OMEPRAZOLE [Concomitant]
     Active Substance: OMEPRAZOLE
     Dosage: AFTER CHEMOTHERAPY, OMEPRAZOLE 40 MG + 0.9 NORMAL SALINE NS 100 ML
     Route: 065
  26. OMEPRAZOLE [Concomitant]
     Active Substance: OMEPRAZOLE
     Dosage: OMEPRAZOLE ENTERIC-COATED CAPSULE 40 MG + DEXAMETHASONE TABLET 7.5 MG
     Route: 048
     Dates: start: 20211201
  27. OMEPRAZOLE [Concomitant]
     Active Substance: OMEPRAZOLE
     Dosage: OMEPRAZOLE ENTERIC-COATED CAPSULE 40 MG + DEXAMETHASONE TABLET 7.5 MG
     Route: 048
     Dates: start: 20211130
  28. OMEPRAZOLE [Concomitant]
     Active Substance: OMEPRAZOLE
     Dosage: OMEPRAZOLE ENTERIC-COATED CAPSULE 40 MG + DEXAMETHASONE TABLET 7.5 MG
     Route: 048
     Dates: start: 202111
  29. OMEPRAZOLE [Concomitant]
     Active Substance: OMEPRAZOLE
     Dosage: OMEPRAZOLE ENTERIC-COATED CAPSULE 40 MG + DEXAMETHASONE TABLET 7.5 MG
     Route: 048
     Dates: start: 20211129
  30. OMEPRAZOLE [Concomitant]
     Active Substance: OMEPRAZOLE
     Dosage: SECOND DOSE, OMEPRAZOLE ENTERIC-COATED CAPSULE 40 MG + DEXAMETHASONE TABLET 7.5 MG
     Route: 048
     Dates: start: 20211129
  31. DEXAMETHASONE [Concomitant]
     Active Substance: DEXAMETHASONE
     Indication: Prophylaxis
     Dosage: OMEPRAZOLE ENTERIC-COATED CAPSULE 40 MG + DEXAMETHASONE TABLET 7.5 MG
     Route: 048
     Dates: start: 20211105
  32. DEXAMETHASONE [Concomitant]
     Active Substance: DEXAMETHASONE
     Dosage: SECOND DOSE, OMEPRAZOLE ENTERIC-COATED CAPSULE 40 MG + DEXAMETHASONE TABLET 7.5 MG
     Route: 048
     Dates: start: 20211105
  33. DEXAMETHASONE [Concomitant]
     Active Substance: DEXAMETHASONE
     Dosage: OMEPRAZOLE ENTERIC-COATED CAPSULE 40 MG + DEXAMETHASONE TABLET 7.5 MG
     Route: 048
     Dates: start: 20211106
  34. DEXAMETHASONE [Concomitant]
     Active Substance: DEXAMETHASONE
     Dosage: AFTER CHEMOTHERAPY
     Route: 040
  35. DEXAMETHASONE [Concomitant]
     Active Substance: DEXAMETHASONE
     Dosage: OMEPRAZOLE ENTERIC-COATED CAPSULE 40 MG + DEXAMETHASONE TABLET 7.5 MG
     Route: 048
     Dates: start: 20211201
  36. DEXAMETHASONE [Concomitant]
     Active Substance: DEXAMETHASONE
     Route: 048
     Dates: start: 20211130
  37. DEXAMETHASONE [Concomitant]
     Active Substance: DEXAMETHASONE
     Dosage: OMEPRAZOLE ENTERIC-COATED CAPSULE 40 MG + DEXAMETHASONE TABLET 7.5 MG
     Route: 048
     Dates: start: 202111
  38. DEXAMETHASONE [Concomitant]
     Active Substance: DEXAMETHASONE
     Dosage: OMEPRAZOLE ENTERIC-COATED CAPSULE 40 MG + DEXAMETHASONE TABLET 7.5 MG
     Route: 048
     Dates: start: 20211129
  39. DEXAMETHASONE [Concomitant]
     Active Substance: DEXAMETHASONE
     Dosage: SECOND DOSE, OMEPRAZOLE ENTERIC-COATED CAPSULE 40 MG + DEXAMETHASONE TABLET 7.5 MG
     Route: 048
     Dates: start: 20211129
  40. TROPISETRON [Concomitant]
     Active Substance: TROPISETRON
     Indication: Prophylaxis
     Dosage: TROPISETRON INJECTION 5 MG + 0.9% SODIUM CHLORIDE 5 ML
     Route: 065
     Dates: start: 20211106
  41. TROPISETRON [Concomitant]
     Active Substance: TROPISETRON
     Dosage: TROPISETRON INJECTION 5 MG + 0.9% SODIUM CHLORIDE 5 ML
     Route: 065
     Dates: start: 20211130
  42. TROPISETRON [Concomitant]
     Active Substance: TROPISETRON
     Dosage: TROPISETRON INJECTION 5 MG + 0.9% SODIUM CHLORIDE 5 ML
     Route: 065
     Dates: start: 20211107
  43. TROPISETRON [Concomitant]
     Active Substance: TROPISETRON
     Dosage: TROPISETRON INJECTION 5 MG + 0.9% SODIUM CHLORIDE 5 ML AFTER CHEMOTHERAPY
     Route: 065

REACTIONS (3)
  - Angioedema [Recovering/Resolving]
  - Nausea [Recovering/Resolving]
  - Urticaria [Recovering/Resolving]

NARRATIVE: CASE EVENT DATE: 20211107
